FAERS Safety Report 4705405-7 (Version None)
Quarter: 2005Q3

REPORT INFORMATION
  Report Type: 
  Country: None (occurrence: None)
  Receive Date: 20050701
  Receipt Date: 20030326
  Transmission Date: 20060218
  Serious: Yes (Hospitalization)
  Sender: FDA-Public Use
  Company Number: ES-GLAXOSMITHKLINE-B0296241A

PATIENT
  Age: 71 Year
  Sex: Male

DRUGS (2)
  1. ROPINIROLE HCL [Suspect]
     Indication: PARKINSON'S DISEASE
     Route: 048
     Dates: start: 20001129, end: 20030324
  2. MADOPAR [Concomitant]
     Indication: PARKINSON'S DISEASE
     Dosage: 18MG PER DAY
     Dates: start: 19960101

REACTIONS (1)
  - PLEURAL EFFUSION [None]
